FAERS Safety Report 23825514 (Version 5)
Quarter: 2025Q2

REPORT INFORMATION
  Report Type: Spontaneous
  Country: US (occurrence: US)
  Receive Date: 20240507
  Receipt Date: 20250514
  Transmission Date: 20250716
  Serious: Yes (Hospitalization, Other)
  Sender: PFIZER
  Company Number: US-PFIZER INC-202400100808

PATIENT
  Age: 55 Year
  Sex: Female

DRUGS (12)
  1. XELJANZ [Suspect]
     Active Substance: TOFACITINIB CITRATE
     Indication: Rheumatoid arthritis
     Dosage: 5 MG, TWICE A DAY
     Route: 048
     Dates: start: 2019
  2. XELJANZ [Suspect]
     Active Substance: TOFACITINIB CITRATE
     Dosage: 5 MG, 1 TABLET TWICE A DAY/5 MG ORAL TWICE DAILY
     Route: 048
     Dates: start: 2022
  3. XELJANZ [Suspect]
     Active Substance: TOFACITINIB CITRATE
     Dosage: 5MG TWICE PER DAY ORALLY
     Route: 048
  4. BENADRYL [Concomitant]
     Active Substance: DIPHENHYDRAMINE HYDROCHLORIDE
     Indication: Hypersensitivity
  5. DAPSONE [Concomitant]
     Active Substance: DAPSONE
  6. EPIPEN [Concomitant]
     Active Substance: EPINEPHRINE
  7. EPIPEN [Concomitant]
     Active Substance: EPINEPHRINE
  8. ERGOCALCIFEROL [Concomitant]
     Active Substance: ERGOCALCIFEROL
  9. GAMMAGARD S/D [Concomitant]
     Active Substance: HUMAN IMMUNOGLOBULIN G
  10. GAMMAGARD [Concomitant]
     Active Substance: HUMAN IMMUNOGLOBULIN G
  11. ALLERGY RELIEF [CETIRIZINE HYDROCHLORIDE] [Concomitant]
  12. BANOPHEN [Concomitant]
     Active Substance: DIPHENHYDRAMINE HYDROCHLORIDE

REACTIONS (14)
  - Thrombosis [Unknown]
  - COVID-19 [Unknown]
  - Mental disorder [Unknown]
  - Bone graft [Not Recovered/Not Resolved]
  - Shoulder arthroplasty [Not Recovered/Not Resolved]
  - Mastocytosis [Recovering/Resolving]
  - Gastrointestinal haemorrhage [Recovered/Resolved]
  - Shoulder operation [Unknown]
  - Oesophageal stenosis [Unknown]
  - Dysphagia [Unknown]
  - Infection [Unknown]
  - Herpes zoster [Unknown]
  - Arthralgia [Unknown]
  - Movement disorder [Unknown]

NARRATIVE: CASE EVENT DATE: 20201201
